FAERS Safety Report 6192546-3 (Version None)
Quarter: 2009Q2

REPORT INFORMATION
  Report Type: 
  Country: None (occurrence: None)
  Receive Date: 20090518
  Receipt Date: 20090508
  Transmission Date: 20091009
  Serious: No
  Sender: FDA-Public Use
  Company Number: GB-ASTRAZENECA-2009GB01117

PATIENT
  Age: 45 Year
  Sex: Female

DRUGS (2)
  1. SEROQUEL [Suspect]
     Route: 048
  2. LITHIUM [Concomitant]

REACTIONS (2)
  - HYPOTHYROIDISM [None]
  - WHITE BLOOD CELL COUNT DECREASED [None]
